FAERS Safety Report 5782473-5 (Version None)
Quarter: 2008Q2

REPORT INFORMATION
  Report Type: 
  Country: None (occurrence: None)
  Receive Date: 20080623
  Receipt Date: 20080213
  Transmission Date: 20081010
  Serious: No
  Sender: FDA-Public Use
  Company Number: US-AMGEN-KDL265312

PATIENT
  Sex: Female

DRUGS (8)
  1. ARANESP [Suspect]
     Indication: DIALYSIS
     Dates: start: 20060701
  2. NEPHRO-CAPS [Concomitant]
  3. PRINIVIL [Concomitant]
  4. NORVASC [Concomitant]
  5. K-DUR [Concomitant]
  6. RENAGEL [Concomitant]
  7. TUMS [Concomitant]
  8. AMBIEN [Concomitant]

REACTIONS (1)
  - HAEMOGLOBIN DECREASED [None]
